FAERS Safety Report 4766564-3 (Version None)
Quarter: 2005Q3

REPORT INFORMATION
  Report Type: 
  Country: None (occurrence: None)
  Receive Date: 20050908
  Receipt Date: 20050830
  Transmission Date: 20060218
  Serious: Yes (Hospitalization, Disabling)
  Sender: FDA-Public Use
  Company Number: HQ6161314JAN2003

PATIENT
  Age: 48 Year
  Sex: Female

DRUGS (1)
  1. DIMETAPP [Suspect]
     Dosage: ORAL
     Route: 048

REACTIONS (4)
  - HEADACHE [None]
  - MUSCULOSKELETAL STIFFNESS [None]
  - SUBARACHNOID HAEMORRHAGE [None]
  - VASOSPASM [None]
